FAERS Safety Report 4771251-1 (Version None)
Quarter: 2005Q3

REPORT INFORMATION
  Report Type: 
  Country: None (occurrence: None)
  Receive Date: 20050914
  Receipt Date: 20050830
  Transmission Date: 20060218
  Serious: Yes (Hospitalization)
  Sender: FDA-Public Use
  Company Number: 2005BI014645

PATIENT
  Age: 59 Year
  Sex: Female

DRUGS (17)
  1. AVONEX [Suspect]
     Indication: MULTIPLE SCLEROSIS
     Dosage: 30 UG;QW;IM
     Route: 030
     Dates: start: 20000502
  2. AVONEX [Suspect]
     Indication: MULTIPLE SCLEROSIS
     Dosage: 30 UG;QW;IM
     Route: 030
     Dates: start: 20000502
  3. AVONEX [Suspect]
     Indication: MULTIPLE SCLEROSIS
     Dosage: 30 UG;QW;IM
     Route: 030
  4. ESTADIOL [Concomitant]
  5. MEDROXYPROGESTERONE [Concomitant]
  6. ASPIRIN [Concomitant]
  7. IBUPROFEN [Concomitant]
  8. LEXAPRO [Concomitant]
  9. DETROL [Concomitant]
  10. COLACE [Concomitant]
  11. FIBERCON [Concomitant]
  12. SENOKOT [Concomitant]
  13. GLUCOSAMINE [Concomitant]
  14. CHONDROITIN [Concomitant]
  15. MULTI-VITAMIN [Concomitant]
  16. FLAXSEED OIL [Concomitant]
  17. OMEGA 3 FISH OIL [Concomitant]

REACTIONS (3)
  - BREAST CANCER [None]
  - OESTROGEN RECEPTOR ASSAY POSITIVE [None]
  - PROGESTERONE RECEPTOR ASSAY POSITIVE [None]
